FAERS Safety Report 8847673 (Version 1)
Quarter: 2012Q4

REPORT INFORMATION
  Report Type: Report from Study
  Country: DE (occurrence: DE)
  Receive Date: 20121018
  Receipt Date: 20121018
  Transmission Date: 20130627
  Serious: Yes (Other)
  Sender: FDA-Public Use
  Company Number: PHHY2012DE090948

PATIENT
  Sex: Male

DRUGS (2)
  1. GLIVEC [Suspect]
     Indication: GASTROINTESTINAL STROMAL TUMOUR
     Dosage: 400 mg,
     Route: 048
     Dates: start: 20111005
  2. GLIVEC [Suspect]
     Dosage: 800 mg,
     Route: 048

REACTIONS (2)
  - Pneumothorax [Recovered/Resolved]
  - Oedema peripheral [Unknown]
